FAERS Safety Report 5317627-5 (Version None)
Quarter: 2007Q2

REPORT INFORMATION
  Report Type: 
  Country: None (occurrence: None)
  Receive Date: 20070507
  Receipt Date: 20070430
  Transmission Date: 20071010
  Serious: Yes (Other)
  Sender: FDA-Public Use
  Company Number: US-AMGEN-STX222498

PATIENT
  Sex: Male

DRUGS (1)
  1. ENBREL [Suspect]
     Indication: PSORIASIS
     Route: 058
     Dates: start: 20060801

REACTIONS (4)
  - ACCIDENTAL NEEDLE STICK [None]
  - FALL [None]
  - INJECTION SITE IRRITATION [None]
  - LOSS OF CONSCIOUSNESS [None]
